FAERS Safety Report 10019162 (Version 1)
Quarter: 2014Q1

REPORT INFORMATION
  Report Type: Spontaneous
  Country: US (occurrence: US)
  Receive Date: 20140318
  Receipt Date: 20140318
  Transmission Date: 20141002
  Serious: No
  Sender: FDA-Public Use
  Company Number: US-BAYER-2014-040648

PATIENT
  Age: 48 Year
  Sex: Male
  Weight: 67.57 kg

DRUGS (7)
  1. BETASERON [Suspect]
     Dosage: 0.25 MG, QOD
     Route: 058
  2. MEDROL [Concomitant]
  3. BENADRYL [Concomitant]
  4. LISINOPRIL [Concomitant]
  5. ADVIL [Concomitant]
  6. TYLENOL [PARACETAMOL] [Concomitant]
  7. MODAFINIL [Concomitant]

REACTIONS (1)
  - Vertigo [Unknown]
